FAERS Safety Report 6009552-1 (Version None)
Quarter: 2008Q4

REPORT INFORMATION
  Report Type: 
  Country: None (occurrence: None)
  Receive Date: 20081217
  Receipt Date: 20081103
  Transmission Date: 20090506
  Serious: Yes (Hospitalization, Other)
  Sender: FDA-Public Use
  Company Number: US-BAYER-200836039NA

PATIENT
  Age: 47 Year
  Sex: Female
  Weight: 91 kg

DRUGS (1)
  1. YAZ [Suspect]
     Indication: MENSTRUATION IRREGULAR
     Route: 048
     Dates: start: 20080918, end: 20081009

REACTIONS (1)
  - DEEP VEIN THROMBOSIS [None]
